FAERS Safety Report 23404362 (Version 1)
Quarter: 2024Q1

REPORT INFORMATION
  Report Type: Spontaneous
  Country: NL (occurrence: NL)
  Receive Date: 20240116
  Receipt Date: 20240116
  Transmission Date: 20240410
  Serious: Yes (Other)
  Sender: FDA-Public Use
  Company Number: NL-EMA-20131023-AUTODUP-363011

PATIENT
  Age: 63 Year
  Sex: Male

DRUGS (7)
  1. METHOTREXATE [Suspect]
     Active Substance: METHOTREXATE
     Indication: Inflammation
     Dosage: 2.5 MG, PER WEEK
  2. PREDNISOLONE [Suspect]
     Active Substance: PREDNISOLONE
     Indication: Inflammation
     Dosage: 80 MG, PER DAY
  3. AZATHIOPRINE [Suspect]
     Active Substance: AZATHIOPRINE
     Indication: Inflammation
     Dosage: 100 MG, DAILY
  4. METHYLPREDNISOLONE [Suspect]
     Active Substance: METHYLPREDNISOLONE
     Indication: Inflammation
     Dosage: 1000 MG, DAILY
  5. MYCOPHENOLATE MOFETIL [Concomitant]
     Active Substance: MYCOPHENOLATE MOFETIL
  6. VALACYCLOVIR HYDROCHLORIDE [Concomitant]
     Active Substance: VALACYCLOVIR HYDROCHLORIDE
     Indication: Herpes virus infection
  7. PREDNISOLONE [Suspect]
     Active Substance: PREDNISOLONE
     Indication: Immunosuppression
     Dosage: 20 MG, PER DAY

REACTIONS (10)
  - Pancytopenia [Recovered/Resolved]
  - Herpes virus infection [Unknown]
  - Diabetes mellitus [Unknown]
  - Gamma-glutamyltransferase increased [Unknown]
  - Deep vein thrombosis [Unknown]
  - Aspartate aminotransferase increased [Unknown]
  - Hepatic function abnormal [Unknown]
  - Myelosuppression [Unknown]
  - Alanine aminotransferase increased [Unknown]
  - Erythropoiesis abnormal [Unknown]
